FAERS Safety Report 5531362-X (Version None)
Quarter: 2007Q4

REPORT INFORMATION
  Report Type: 
  Country: None (occurrence: None)
  Receive Date: 20071127
  Receipt Date: 20071113
  Transmission Date: 20080405
  Serious: Yes (Hospitalization)
  Sender: FDA-Public Use
  Company Number: 02100-JPN-07-0737

PATIENT
  Age: 85 Year
  Sex: Male

DRUGS (11)
  1. CILOSTAZOL [Suspect]
     Indication: PERIPHERAL CIRCULATORY FAILURE
     Dosage: 200 MG ORAL
     Route: 048
     Dates: start: 20071004, end: 20071023
  2. ASCORBIC ACID [Concomitant]
  3. ALPROSTADIL [Concomitant]
  4. DARBEPOETIN ALFA (GENETICAL RECOMBINATION) [Concomitant]
  5. FERRIC OXIDE SACCHARATED [Concomitant]
  6. ZOPICLONE [Concomitant]
  7. SENNOSIDE [Concomitant]
  8. LANSOPRAZOLE [Concomitant]
  9. FUROSEMIDE [Concomitant]
  10. AMLODIPINE BESYLATE [Concomitant]
  11. ALFACALCIDOL [Concomitant]

REACTIONS (2)
  - LEUKOPLAKIA [None]
  - MOUTH HAEMORRHAGE [None]
